FAERS Safety Report 7544086-4 (Version None)
Quarter: 2011Q2

REPORT INFORMATION
  Report Type: 
  Country: None (occurrence: None)
  Receive Date: 20110613
  Receipt Date: 20060119
  Transmission Date: 20111010
  Serious: Yes (Death, Hospitalization, Other)
  Sender: FDA-Public Use
  Company Number: PHHO2005CA09307

PATIENT
  Sex: Female

DRUGS (10)
  1. SANDOSTATIN LAR [Suspect]
     Indication: CARCINOID SYNDROME
     Dosage: 20 MG, EVERY 4 WEEKS
     Dates: start: 20050124, end: 20051222
  2. DIGOXIN [Concomitant]
  3. COLACE [Concomitant]
  4. METOPROLOL SUCCINATE [Concomitant]
  5. MULTI-VITAMINS [Concomitant]
  6. OMEPRAZOLE [Suspect]
  7. PRILOSEC [Concomitant]
  8. GLYBURIDE [Concomitant]
  9. VITAMIN D [Concomitant]
  10. COUMADIN [Concomitant]

REACTIONS (6)
  - DEATH [None]
  - PAIN [None]
  - BIOPSY OESOPHAGUS ABNORMAL [None]
  - NEOPLASM MALIGNANT [None]
  - ELECTROCARDIOGRAM ABNORMAL [None]
  - BIOPSY STOMACH ABNORMAL [None]
